FAERS Safety Report 10498632 (Version 1)
Quarter: 2014Q4

REPORT INFORMATION
  Report Type: Spontaneous
  Country: GB (occurrence: GB)
  Receive Date: 20141006
  Receipt Date: 20141006
  Transmission Date: 20150528
  Serious: Yes (Death, Other)
  Sender: FDA-Public Use
  Company Number: PHHY2014GB128667

PATIENT
  Age: 75 Year
  Sex: Female

DRUGS (8)
  1. FUROSEMIDE. [Concomitant]
     Active Substance: FUROSEMIDE
     Dosage: 20 MG, UNK
  2. LEVOTHYROXINE SODIUM. [Concomitant]
     Active Substance: LEVOTHYROXINE SODIUM
     Dosage: 125 UG, (DOSE INCREASED FROM 100 MICROGRAMS)
     Dates: start: 201302, end: 201308
  3. ROSUVASTATIN [Concomitant]
     Active Substance: ROSUVASTATIN
     Dosage: 20 MG, UNK
  4. LEVOTHYROXINE SODIUM. [Concomitant]
     Active Substance: LEVOTHYROXINE SODIUM
  5. LEVOTHYROXINE SODIUM. [Concomitant]
     Active Substance: LEVOTHYROXINE SODIUM
     Dosage: 100 UG, UNK
     Dates: start: 201308
  6. BISOPROLOL [Concomitant]
     Active Substance: BISOPROLOL
     Dosage: 5 MG, UNK
  7. WARFARIN [Suspect]
     Active Substance: WARFARIN
     Indication: CEREBROVASCULAR ACCIDENT
     Route: 048
     Dates: start: 199703
  8. CEFALEXIN [Suspect]
     Active Substance: CEPHALEXIN
     Indication: KIDNEY INFECTION
     Dosage: 500 MG, TID
     Route: 048
     Dates: start: 20130806

REACTIONS (5)
  - Seizure [Unknown]
  - Muscle twitching [Not Recovered/Not Resolved]
  - International normalised ratio increased [Unknown]
  - Subdural haemorrhage [Fatal]
  - Drug interaction [Unknown]
